FAERS Safety Report 5664854-3 (Version None)
Quarter: 2008Q1

REPORT INFORMATION
  Report Type: 
  Country: None (occurrence: None)
  Receive Date: 20080314
  Receipt Date: 20080304
  Transmission Date: 20080703
  Serious: Yes (Other)
  Sender: FDA-Public Use
  Company Number: GB-PFIZER INC-2008009033

PATIENT
  Sex: Female

DRUGS (2)
  1. PREGABALIN [Suspect]
     Indication: NEURALGIA
     Route: 048
  2. CO-DYDRAMOL [Concomitant]

REACTIONS (3)
  - CONSTIPATION [None]
  - SOMNAMBULISM [None]
  - SOMNOLENCE [None]
